FAERS Safety Report 7134139-7 (Version None)
Quarter: 2010Q4

REPORT INFORMATION
  Report Type: 
  Country: None (occurrence: None)
  Receive Date: 20101203
  Receipt Date: 20101125
  Transmission Date: 20110411
  Serious: Yes (Other)
  Sender: FDA-Public Use
  Company Number: US-JNJFOC-20100806155

PATIENT
  Sex: Female

DRUGS (1)
  1. LEVOFLOXACIN [Suspect]
     Indication: RESPIRATORY TRACT INFECTION
     Route: 048

REACTIONS (5)
  - BURSITIS [None]
  - LIGAMENT RUPTURE [None]
  - PERIARTHRITIS [None]
  - ROTATOR CUFF SYNDROME [None]
  - TENDON DISORDER [None]
